FAERS Safety Report 4614285-X (Version None)
Quarter: 2005Q1

REPORT INFORMATION
  Report Type: 
  Country: None (occurrence: None)
  Receive Date: 20050315
  Receipt Date: 20050308
  Transmission Date: 20050727
  Serious: Yes (Death)
  Sender: FDA-Public Use
  Company Number: A03200500145

PATIENT
  Age: 76 Year
  Sex: Male
  Weight: 86.637 kg

DRUGS (17)
  1. ELOXATIN [Suspect]
     Indication: COLORECTAL CANCER METASTATIC
     Dosage: 95 MG Q2W - INTRAVENOUS NOS
     Route: 042
     Dates: start: 20050117, end: 20050117
  2. ELOXATIN [Suspect]
     Indication: METASTASES TO LIVER
     Dosage: 95 MG Q2W - INTRAVENOUS NOS
     Route: 042
     Dates: start: 20050117, end: 20050117
  3. ELOXATIN [Suspect]
     Indication: METASTASES TO LUNG
     Dosage: 95 MG Q2W - INTRAVENOUS NOS
     Route: 042
     Dates: start: 20050117, end: 20050117
  4. AVASTIN [Suspect]
     Indication: COLORECTAL CANCER METASTATIC
     Dosage: 445 MG Q2W - INTRAVENOUS NOS
     Route: 042
     Dates: start: 20050117, end: 20050117
  5. AVASTIN [Suspect]
     Indication: METASTASES TO LIVER
     Dosage: 445 MG Q2W - INTRAVENOUS NOS
     Route: 042
     Dates: start: 20050117, end: 20050117
  6. AVASTIN [Suspect]
     Indication: METASTASES TO LUNG
     Dosage: 445 MG Q2W - INTRAVENOUS NOS
     Route: 042
     Dates: start: 20050117, end: 20050117
  7. FLUOROURACIL [Suspect]
     Indication: COLORECTAL CANCER METASTATIC
     Dosage: INTRAVENOUS NOS
     Route: 042
     Dates: start: 20050117, end: 20050117
  8. FLUOROURACIL [Suspect]
     Indication: METASTASES TO LIVER
     Dosage: INTRAVENOUS NOS
     Route: 042
     Dates: start: 20050117, end: 20050117
  9. FLUOROURACIL [Suspect]
     Indication: METASTASES TO LUNG
     Dosage: INTRAVENOUS NOS
     Route: 042
     Dates: start: 20050117, end: 20050117
  10. LEUCOVORIN CALCIUM [Suspect]
     Indication: COLORECTAL CANCER METASTATIC
     Dosage: INTRAVENOUS NOS
     Route: 042
     Dates: start: 20050117, end: 20050117
  11. LEUCOVORIN CALCIUM [Suspect]
     Indication: METASTASES TO LIVER
     Dosage: INTRAVENOUS NOS
     Route: 042
     Dates: start: 20050117, end: 20050117
  12. LEUCOVORIN CALCIUM [Suspect]
     Indication: METASTASES TO LUNG
     Dosage: INTRAVENOUS NOS
     Route: 042
     Dates: start: 20050117, end: 20050117
  13. DOLASETRON MESILATE [Concomitant]
  14. DEXAMETHASONE [Concomitant]
  15. WARFARIN SODIUM [Concomitant]
  16. ACETYLSALICYLIC ACID SRT [Concomitant]
  17. SIMVASTATIN [Concomitant]

REACTIONS (12)
  - CARDIO-RESPIRATORY ARREST [None]
  - CHILLS [None]
  - COMA [None]
  - DIARRHOEA [None]
  - DYSPNOEA [None]
  - EMBOLISM [None]
  - FALL [None]
  - FATIGUE [None]
  - HAEMATOCRIT DECREASED [None]
  - NAUSEA [None]
  - RED BLOOD CELL COUNT DECREASED [None]
  - VOMITING [None]
